FAERS Safety Report 7787265-3 (Version None)
Quarter: 2011Q3

REPORT INFORMATION
  Report Type: 
  Country: None (occurrence: None)
  Receive Date: 20110929
  Receipt Date: 20110916
  Transmission Date: 20111222
  Serious: Yes (Other)
  Sender: FDA-Public Use
  Company Number: US-JNJFOC-20110910395

PATIENT
  Age: 15 Month
  Sex: Female
  Weight: 7.71 kg

DRUGS (4)
  1. AMOXICILLIN [Concomitant]
     Indication: EAR INFECTION
     Dosage: 1/4 TEASPOON PER DAY FOR THE PAST 5 DAYS.
     Route: 065
     Dates: start: 20110401
  2. FAST ACTING MYLANTA ORIGINAL [Suspect]
     Indication: FLATULENCE
     Dosage: 1 TEASPOON
     Route: 048
     Dates: start: 20101201, end: 20110914
  3. FAST ACTING MYLANTA ORIGINAL [Suspect]
     Indication: GASTROOESOPHAGEAL REFLUX DISEASE
     Dosage: 1 TEASPOON
     Route: 048
     Dates: start: 20101201, end: 20110914
  4. CLARITIN [Concomitant]
     Indication: MULTIPLE ALLERGIES
     Dosage: 1/8 TEASPOON PER DAY FOR 8 MONTHS
     Route: 065
     Dates: start: 20110101

REACTIONS (3)
  - CONSTIPATION [None]
  - ABDOMINAL PAIN UPPER [None]
  - PRODUCT QUALITY ISSUE [None]
